FAERS Safety Report 14885676 (Version 5)
Quarter: 2020Q3

REPORT INFORMATION
  Report Type: Report from Study
  Country: ES (occurrence: IT)
  Receive Date: 20180511
  Receipt Date: 20200720
  Transmission Date: 20201102
  Serious: Yes (Death, Other)
  Sender: FDA-Public Use
  Company Number: IT-PURDUE-GBR-2018-0055904

PATIENT
  Age: 40 Year
  Sex: Male

DRUGS (7)
  1. PREGABALIN. [Suspect]
     Active Substance: PREGABALIN
     Indication: INTENTIONAL PRODUCT MISUSE
     Dosage: UNK
     Route: 065
  2. CLONAZEPAM. [Suspect]
     Active Substance: CLONAZEPAM
     Indication: INTENTIONAL PRODUCT MISUSE
     Dosage: UNK
     Route: 065
  3. MIRTAZAPINE. [Suspect]
     Active Substance: MIRTAZAPINE
     Indication: INTENTIONAL PRODUCT MISUSE
     Dosage: UNK
     Route: 048
  4. ALPRAZOLAM. [Suspect]
     Active Substance: ALPRAZOLAM
     Indication: INTENTIONAL PRODUCT MISUSE
     Dosage: UNK
     Route: 065
  5. LEVOMEPROMAZINE [Suspect]
     Active Substance: LEVOMEPROMAZINE
     Indication: INTENTIONAL PRODUCT MISUSE
     Dosage: UNK
     Route: 065
  6. MORPHINE SULFATE. [Suspect]
     Active Substance: MORPHINE SULFATE
     Indication: INTENTIONAL PRODUCT MISUSE
     Dosage: UNK
     Route: 065
  7. MIRTAZAPINE. [Suspect]
     Active Substance: MIRTAZAPINE
     Dosage: UNK
     Route: 065

REACTIONS (3)
  - Intentional product misuse [Fatal]
  - Pulmonary haemorrhage [Fatal]
  - Drug abuse [Fatal]

NARRATIVE: CASE EVENT DATE: 201506
